FAERS Safety Report 14167142 (Version 2)
Quarter: 2017Q4

REPORT INFORMATION
  Report Type: Spontaneous
  Country: US (occurrence: US)
  Receive Date: 20171107
  Receipt Date: 20171204
  Transmission Date: 20180321
  Serious: No
  Sender: FDA-Public Use
  Company Number: PHEH2017US036004

PATIENT
  Age: 65 Year
  Sex: Female

DRUGS (1)
  1. VOTRIENT [Suspect]
     Active Substance: PAZOPANIB HYDROCHLORIDE
     Indication: RENAL CANCER
     Dosage: 800 MG, QD
     Route: 048
     Dates: start: 20171003

REACTIONS (4)
  - Fatigue [Unknown]
  - Diarrhoea [Unknown]
  - Oral pain [Unknown]
  - Hair colour changes [Unknown]

NARRATIVE: CASE EVENT DATE: 20171003
